FAERS Safety Report 6203146-0 (Version None)
Quarter: 2009Q2

REPORT INFORMATION
  Report Type: 
  Country: None (occurrence: None)
  Receive Date: 20090527
  Receipt Date: 20090521
  Transmission Date: 20091009
  Serious: Yes (Other)
  Sender: FDA-Public Use
  Company Number: CA-ASTRAZENECA-2009UW12991

PATIENT
  Sex: Male

DRUGS (3)
  1. ATACAND HCT [Suspect]
     Dosage: 16/12.5 MG DAILY
     Route: 048
     Dates: start: 20040101
  2. METFORMIN HCL [Concomitant]
     Dates: start: 20040101
  3. LIPITOR [Concomitant]
     Dates: start: 20070101

REACTIONS (1)
  - MALIGNANT MELANOMA [None]
